FAERS Safety Report 5585299-0 (Version None)
Quarter: 2008Q1

REPORT INFORMATION
  Report Type: 
  Country: None (occurrence: None)
  Receive Date: 20080109
  Receipt Date: 20080102
  Transmission Date: 20080703
  Serious: Yes (Other)
  Sender: FDA-Public Use
  Company Number: GB-ALLERGAN-0711291US

PATIENT
  Sex: Female

DRUGS (1)
  1. LACRI-LUBE [Suspect]
     Indication: DRUG USE FOR UNKNOWN INDICATION
     Route: 047

REACTIONS (4)
  - CELLULITIS [None]
  - ECZEMA [None]
  - ERYTHEMA [None]
  - SKIN IRRITATION [None]
